FAERS Safety Report 13016961 (Version 5)
Quarter: 2017Q3

REPORT INFORMATION
  Report Type: Report from Study
  Country: CA (occurrence: CA)
  Receive Date: 20161212
  Receipt Date: 20170919
  Transmission Date: 20171127
  Serious: Yes (Other)
  Sender: FDA-Public Use
  Company Number: PHHY2016CA169437

PATIENT
  Sex: Female

DRUGS (3)
  1. AFINITOR [Suspect]
     Active Substance: EVEROLIMUS
     Indication: BREAST CANCER
     Dosage: 10 MG, QD
     Route: 048
     Dates: start: 20161125
  2. AFINITOR [Suspect]
     Active Substance: EVEROLIMUS
     Dosage: 5 MG, QD
     Route: 065
     Dates: end: 201707
  3. MOUTH WASH [Concomitant]
     Indication: PRODUCT USED FOR UNKNOWN INDICATION
     Dosage: UNK
     Route: 065

REACTIONS (7)
  - Fatigue [Unknown]
  - General physical health deterioration [Unknown]
  - Lung disorder [Unknown]
  - Diabetes mellitus [Unknown]
  - Osteoporosis [Unknown]
  - Osteonecrosis [Unknown]
  - Hyperglycaemia [Recovering/Resolving]
